FAERS Safety Report 7125445-0 (Version None)
Quarter: 2010Q4

REPORT INFORMATION
  Report Type: 
  Country: None (occurrence: None)
  Receive Date: 20101129
  Receipt Date: 20101117
  Transmission Date: 20110411
  Serious: Yes (Other)
  Sender: FDA-Public Use
  Company Number: US-ROCHE-730735

PATIENT
  Sex: Female
  Weight: 68.5 kg

DRUGS (6)
  1. HERCEPTIN [Suspect]
     Indication: BREAST CANCER RECURRENT
     Dosage: DURATION: 2 YEARS.
     Route: 042
  2. LISINOPRIL [Concomitant]
     Dosage: DOSE: 10 MG
  3. ZETIA [Concomitant]
     Dosage: DOSE: 10 MG
  4. FEXOFENADINE HCL [Concomitant]
     Dosage: DOSE: 180 MG
  5. TYKERB [Concomitant]
     Dosage: DOSE: 250 MG
  6. WELCHOL [Concomitant]

REACTIONS (5)
  - HYDROMETRA [None]
  - OVARIAN DISORDER [None]
  - OVARIAN ENLARGEMENT [None]
  - POSITRON EMISSION TOMOGRAM ABNORMAL [None]
  - UTERINE DISORDER [None]
